FAERS Safety Report 11482416 (Version 1)
Quarter: 2015Q3

REPORT INFORMATION
  Report Type: Spontaneous
  Country: NZ (occurrence: NZ)
  Receive Date: 20150909
  Receipt Date: 20150909
  Transmission Date: 20151125
  Serious: Yes (Other)
  Sender: FDA-Public Use
  Company Number: PHHY2015NZ105929

PATIENT
  Age: 53 Year
  Sex: Male

DRUGS (8)
  1. PAMIDRONATE [Suspect]
     Active Substance: PAMIDRONATE DISODIUM
     Indication: METASTATIC RENAL CELL CARCINOMA
     Dosage: 90 MG, UNK
     Route: 042
     Dates: start: 201302
  2. ZOLEDRONATE [Suspect]
     Active Substance: ZOLEDRONIC ACID
     Indication: METASTATIC RENAL CELL CARCINOMA
     Dosage: UNK
     Route: 065
  3. TKI258 [Suspect]
     Active Substance: DOVITINIB LACTATE
     Indication: METASTATIC RENAL CELL CARCINOMA
     Dosage: 500 MG, QD
     Route: 065
     Dates: start: 20121021, end: 201306
  4. SUNITINIB [Suspect]
     Active Substance: SUNITINIB
     Indication: METASTATIC RENAL CELL CARCINOMA
     Dosage: 50 MG, QD
     Route: 065
     Dates: start: 20130628
  5. DENOSUMAB [Suspect]
     Active Substance: DENOSUMAB
     Indication: METASTATIC RENAL CELL CARCINOMA
     Dosage: 120 MG, UNK
     Route: 058
  6. ZOLEDRONATE [Suspect]
     Active Substance: ZOLEDRONIC ACID
     Indication: HYPERCALCAEMIA OF MALIGNANCY
  7. SUNITINIB [Suspect]
     Active Substance: SUNITINIB
     Dosage: 62.5 MG DAILY CONTINUOUS DOSING
     Route: 065
  8. FELODIPINE. [Concomitant]
     Active Substance: FELODIPINE
     Indication: HYPERTENSION
     Route: 065

REACTIONS (3)
  - Disease progression [Unknown]
  - Osteonecrosis of jaw [Unknown]
  - Hypercalcaemia [Recovered/Resolved]

NARRATIVE: CASE EVENT DATE: 201402
